FAERS Safety Report 8324580 (Version 3)
Quarter: 2014Q1

REPORT INFORMATION
  Report Type: Spontaneous
  Country: US (occurrence: US)
  Receive Date: 20120106
  Receipt Date: 20140225
  Transmission Date: 20141002
  Serious: Yes (Other)
  Sender: FDA-Public Use
  Company Number: US-BAYER-2011-124608

PATIENT
  Age: 34 Year
  Sex: Female
  Weight: 74.38 kg

DRUGS (3)
  1. YAZ [Suspect]
     Indication: PREMENSTRUAL SYNDROME
     Dosage: UNK
     Dates: start: 2003, end: 2009
  2. YASMIN [Suspect]
     Indication: PREMENSTRUAL SYNDROME
     Dosage: UNK
     Dates: start: 2003, end: 2009
  3. SINGULAIR [Concomitant]

REACTIONS (5)
  - Cholelithiasis [None]
  - Cholelithiasis [None]
  - Cholecystitis acute [None]
  - Pain [None]
  - Emotional distress [None]
